FAERS Safety Report 5747880-5 (Version None)
Quarter: 2008Q2

REPORT INFORMATION
  Report Type: 
  Country: None (occurrence: None)
  Receive Date: 20080521
  Receipt Date: 20080513
  Transmission Date: 20081010
  Serious: Yes (Hospitalization)
  Sender: FDA-Public Use
  Company Number: 2008BI009879

PATIENT
  Age: 62 Year
  Sex: Female
  Weight: 71.2147 kg

DRUGS (2)
  1. AVONEX [Suspect]
     Indication: MULTIPLE SCLEROSIS
     Dosage: 30 UG;QW;IM
     Route: 030
     Dates: start: 20061001
  2. XANAX [Concomitant]

REACTIONS (7)
  - ABASIA [None]
  - BIPOLAR DISORDER [None]
  - CONVULSION [None]
  - INJECTION SITE PAIN [None]
  - MENTAL DISORDER [None]
  - MUSCULOSKELETAL DISORDER [None]
  - NONSPECIFIC REACTION [None]
